FAERS Safety Report 21990597 (Version 1)
Quarter: 2023Q1

REPORT INFORMATION
  Report Type: Spontaneous
  Country: ES (occurrence: ES)
  Receive Date: 20230214
  Receipt Date: 20230214
  Transmission Date: 20230417
  Serious: Yes (Hospitalization)
  Sender: FDA-Public Use
  Company Number: ES-DSJP-DSE-2023-105162

PATIENT
  Sex: Male

DRUGS (1)
  1. EDOXABAN [Suspect]
     Active Substance: EDOXABAN
     Indication: Atrial fibrillation
     Dosage: 60 MG, QD
     Route: 048
     Dates: start: 202202

REACTIONS (4)
  - Vitamin D decreased [Recovered/Resolved]
  - Anaemia [Recovered/Resolved]
  - Faeces discoloured [Unknown]
  - Defaecation disorder [Unknown]

NARRATIVE: CASE EVENT DATE: 20230101
